FAERS Safety Report 9370288 (Version 4)
Quarter: 2013Q3

REPORT INFORMATION
  Report Type: Spontaneous
  Country: PL (occurrence: PL)
  Receive Date: 20130626
  Receipt Date: 20130718
  Transmission Date: 20140515
  Serious: Yes (Death, Other)
  Sender: FDA-Public Use
  Company Number: PL-BAYER-2013-077009

PATIENT
  Age: 83 Year
  Sex: Male
  Weight: 53 kg

DRUGS (8)
  1. ULTRAVIST [Suspect]
     Indication: COMPUTERISED TOMOGRAM THORAX
     Dosage: 60 ML, ONCE
     Route: 042
     Dates: start: 20130614, end: 20130614
  2. ULTRAVIST [Suspect]
     Indication: PULMONARY EMBOLISM
  3. POLPRAZOL [Concomitant]
     Route: 048
  4. NO-SPA [Concomitant]
     Route: 048
  5. PROXACIN [Concomitant]
     Dosage: 200 MG, BID
     Route: 048
  6. FRAXIPARINE [Concomitant]
  7. CORHYDRON [Concomitant]
  8. BERODUAL [Concomitant]

REACTIONS (5)
  - Renal failure acute [Fatal]
  - Anuria [Fatal]
  - Diarrhoea [None]
  - Asthenia [Unknown]
  - Anaemia [Unknown]
